FAERS Safety Report 15453151 (Version 1)
Quarter: 2018Q4

REPORT INFORMATION
  Report Type: Spontaneous
  Country: US (occurrence: US)
  Receive Date: 20181001
  Receipt Date: 20181001
  Transmission Date: 20190204
  Serious: No
  Sender: FDA-Public Use
  Company Number: US-ALLERGAN-1830267US

PATIENT
  Age: 55 Year
  Sex: Female
  Weight: 97.51 kg

DRUGS (1)
  1. RECTIV [Suspect]
     Active Substance: NITROGLYCERIN
     Indication: RECTAL FISSURE
     Dosage: UNK
     Route: 054
     Dates: start: 20180607, end: 20180608

REACTIONS (5)
  - Vertigo [Unknown]
  - Dizziness [Unknown]
  - Drug intolerance [Unknown]
  - Asthenia [Unknown]
  - Malaise [Unknown]

NARRATIVE: CASE EVENT DATE: 20180607
